FAERS Safety Report 6279504-5 (Version None)
Quarter: 2009Q3

REPORT INFORMATION
  Report Type: 
  Country: None (occurrence: None)
  Receive Date: 20090723
  Receipt Date: 20090713
  Transmission Date: 20100115
  Serious: Yes (Other)
  Sender: FDA-Public Use
  Company Number: BR-PFIZER INC-2009229707

PATIENT
  Age: 72 Year

DRUGS (1)
  1. CELEBRA [Suspect]
     Dosage: 200 MG, UNK

REACTIONS (5)
  - ABDOMINAL PAIN [None]
  - BENIGN NEOPLASM OF BLADDER [None]
  - POLLAKIURIA [None]
  - URETHRAL PAIN [None]
  - VAGINAL HAEMORRHAGE [None]
